FAERS Safety Report 6726902-9 (Version None)
Quarter: 2010Q2

REPORT INFORMATION
  Report Type: 
  Country: None (occurrence: None)
  Receive Date: 20100517
  Receipt Date: 20100510
  Transmission Date: 20101027
  Serious: Yes (Hospitalization)
  Sender: FDA-Public Use
  Company Number: US-SP-2010-02033

PATIENT
  Sex: Male

DRUGS (5)
  1. THERACYS [Suspect]
     Indication: BLADDER CANCER
     Route: 043
     Dates: start: 20100318, end: 20100318
  2. NEXIUM [Concomitant]
  3. BUSPIRONE HCL [Concomitant]
  4. ENALAPRIL MALEATE [Concomitant]
     Indication: HYPERTENSION
  5. CLARINEX [Concomitant]

REACTIONS (15)
  - ASTHENIA [None]
  - BOVINE TUBERCULOSIS [None]
  - CHILLS [None]
  - COLD SWEAT [None]
  - COUGH [None]
  - DECREASED APPETITE [None]
  - FATIGUE [None]
  - MUSCLE FATIGUE [None]
  - MUSCLE SPASMS [None]
  - MYALGIA [None]
  - NIGHT SWEATS [None]
  - PYREXIA [None]
  - RHONCHI [None]
  - SOMNOLENCE [None]
  - TINNITUS [None]
